FAERS Safety Report 4803176-7 (Version None)
Quarter: 2005Q4

REPORT INFORMATION
  Report Type: 
  Country: None (occurrence: None)
  Receive Date: 20051013
  Receipt Date: 20050926
  Transmission Date: 20060501
  Serious: Yes (Other)
  Sender: FDA-Public Use
  Company Number: US97040796A

PATIENT
  Age: 51 Year
  Sex: Male
  Weight: 115 kg

DRUGS (13)
  1. HUMALOG [Suspect]
     Indication: DIABETES MELLITUS
     Dosage: 20 U/2 DAY
     Dates: start: 19970101
  2. HUMULIN U [Suspect]
     Indication: DIABETES MELLITUS
     Dosage: 60 U/2 DAY
  3. HUMULIN R [Suspect]
     Indication: DIABETES MELLITUS
     Dosage: 35 U DAY
     Dates: start: 19921201
  4. HUMULIN N [Suspect]
     Indication: DIABETES MELLITUS
     Dosage: 41 U/ 1 DAY
     Dates: start: 19921201
  5. HUMULIN L [Suspect]
     Indication: DIABETES MELLITUS
     Dates: start: 20000101
  6. SYNTHROID [Concomitant]
  7. PREDNISONE TAB [Concomitant]
  8. METHOTREXATE [Concomitant]
  9. AZULFIDINE [Concomitant]
  10. CLINORIL [Concomitant]
  11. DYAZIDE [Concomitant]
  12. MEDROL [Concomitant]
  13. SYMLIN [Concomitant]

REACTIONS (24)
  - BLOOD GLUCOSE FLUCTUATION [None]
  - BLOOD GLUCOSE INCREASED [None]
  - BURNS SECOND DEGREE [None]
  - CARPAL TUNNEL SYNDROME [None]
  - CATARACT [None]
  - DRUG EFFECT DECREASED [None]
  - DYSPNOEA [None]
  - ERYTHEMA [None]
  - EYE INFECTION [None]
  - EYELID PTOSIS [None]
  - HEART RATE INCREASED [None]
  - HYPERHIDROSIS [None]
  - HYPOGLYCAEMIA [None]
  - LOCALISED INFECTION [None]
  - PAIN [None]
  - POOR QUALITY DRUG ADMINISTERED [None]
  - RASH [None]
  - RHEUMATOID ARTHRITIS [None]
  - ROTATOR CUFF SYNDROME [None]
  - SCAR [None]
  - SINUS DISORDER [None]
  - SLEEP APNOEA SYNDROME [None]
  - VERTEBRAL INJURY [None]
  - WEIGHT INCREASED [None]
